FAERS Safety Report 6231069-X (Version None)
Quarter: 2009Q2

REPORT INFORMATION
  Report Type: 
  Country: None (occurrence: None)
  Receive Date: 20090612
  Receipt Date: 20090612
  Transmission Date: 20091009
  Serious: No
  Sender: FDA-Public Use
  Company Number: None

PATIENT
  Age: 80 Year
  Sex: Female
  Weight: 80.74 kg

DRUGS (2)
  1. RISPERIDONE [Suspect]
     Indication: BIPOLAR DISORDER
     Dosage: 2 MG AT BEDTIME PO
     Route: 048
     Dates: start: 20090316, end: 20090601
  2. RISPERIDONE [Suspect]
     Indication: MANIA
     Dosage: 2 MG AT BEDTIME PO
     Route: 048
     Dates: start: 20090316, end: 20090601

REACTIONS (1)
  - PARKINSONISM [None]
